FAERS Safety Report 9681288 (Version 2)
Quarter: 2013Q4

REPORT INFORMATION
  Report Type: Report from Study
  Country: BR (occurrence: BR)
  Receive Date: 20131111
  Receipt Date: 20131111
  Transmission Date: 20140711
  Serious: Yes (Other)
  Sender: FDA-Public Use
  Company Number: PHHY2013BR107452

PATIENT
  Sex: Female

DRUGS (7)
  1. DIOVAN HCT [Suspect]
     Indication: HYPERTENSION
     Dosage: 1 DF (160MG VALS/12.5MG HCT), DAILY
     Route: 048
  2. DIOVAN HCT [Suspect]
     Dosage: 1 DF (80MG VALS/12.5MG HCT) DAILY
     Route: 048
  3. DIOVAN HCT [Suspect]
     Dosage: 1 DF (80MG VALS/12.5MG HCT) DAILY
     Route: 048
  4. AAS [Concomitant]
     Indication: ANTICOAGULANT THERAPY
     Dosage: 1 DF (100MG), DAILY
     Route: 048
  5. LEVOID [Concomitant]
     Indication: HYPOTHYROIDISM
     Dosage: 1 DF (50MG), DAILY
     Route: 048
  6. FLUOXETINE [Concomitant]
     Indication: BIPOLAR DISORDER
     Dosage: 1 DF (20MG), DAILY
     Route: 048
  7. OXCARBAZEPINE [Concomitant]
     Indication: BIPOLAR DISORDER
     Dosage: 1 DF (300MG), DAILY
     Route: 048

REACTIONS (4)
  - Blood uric acid increased [Unknown]
  - Low density lipoprotein increased [Unknown]
  - Pain in extremity [Not Recovered/Not Resolved]
  - Wrong technique in drug usage process [Unknown]
